FAERS Safety Report 9517334 (Version 1)
Quarter: 2013Q3

REPORT INFORMATION
  Report Type: Spontaneous
  Country: US (occurrence: US)
  Receive Date: 20130911
  Receipt Date: 20130911
  Transmission Date: 20140515
  Serious: Yes (Other)
  Sender: FDA-Public Use
  Company Number: US-PFIZER INC-2013261038

PATIENT
  Age: 34 Year
  Sex: Male
  Weight: 102 kg

DRUGS (4)
  1. LYRICA [Suspect]
     Indication: FIBROMYALGIA
     Dosage: 150 MG, 3X/DAY
     Dates: start: 201205, end: 201212
  2. LYRICA [Suspect]
     Indication: INTERVERTEBRAL DISC PROTRUSION
  3. CYMBALTA [Concomitant]
     Indication: NEURALGIA
     Dosage: 60 MG, 2X/DAY
  4. CYMBALTA [Concomitant]
     Indication: DEPRESSION

REACTIONS (2)
  - Accident [Unknown]
  - Impaired work ability [Unknown]
